FAERS Safety Report 11689734 (Version 1)
Quarter: 2015Q4

REPORT INFORMATION
  Report Type: Spontaneous
  Country: US (occurrence: None)
  Receive Date: 20151030
  Receipt Date: 20151030
  Transmission Date: 20160304
  Serious: Yes (Life-Threatening, Hospitalization)
  Sender: FDA-Public Use
  Company Number: None

PATIENT
  Age: 8 Year
  Sex: Female
  Weight: 58 kg

DRUGS (2)
  1. AVDARE [Concomitant]
  2. AUVI-Q [Suspect]
     Active Substance: EPINEPHRINE
     Indication: COW^S MILK INTOLERANCE
     Route: 030
     Dates: start: 20150820

REACTIONS (3)
  - Anaphylactic shock [None]
  - Incorrect dose administered by device [None]
  - Drug ineffective [None]

NARRATIVE: CASE EVENT DATE: 20151020
